FAERS Safety Report 8428535-5 (Version None)
Quarter: 2012Q2

REPORT INFORMATION
  Report Type: 
  Country: None (occurrence: None)
  Receive Date: 20120606
  Receipt Date: 20120606
  Transmission Date: 20120825
  Serious: No
  Sender: FDA-Public Use
  Company Number: None

PATIENT
  Age: 74 Year
  Sex: Female
  Weight: 90.7194 kg

DRUGS (2)
  1. AMITRIPTYLINE HCL [Suspect]
     Indication: PAIN
     Dosage: 1 TAB AT BED TIME, PO
     Route: 048
     Dates: start: 19380503, end: 20120605
  2. AMITRIPTYLINE HCL [Suspect]
     Indication: FIBROMYALGIA
     Dosage: 1 TAB AT BED TIME, PO
     Route: 048
     Dates: start: 19380503, end: 20120605

REACTIONS (4)
  - DRY MOUTH [None]
  - VISION BLURRED [None]
  - URINARY RETENTION [None]
  - CONSTIPATION [None]
